FAERS Safety Report 21710834 (Version 1)
Quarter: 2022Q4

REPORT INFORMATION
  Report Type: Report from Study
  Country: US (occurrence: US)
  Receive Date: 20221212
  Receipt Date: 20221212
  Transmission Date: 20230113
  Serious: No
  Sender: FDA-Public Use
  Company Number: US-ABBVIE-4231890

PATIENT

DRUGS (2)
  1. VENCLEXTA [Suspect]
     Active Substance: VENETOCLAX
     Indication: Refractory anaemia with an excess of blasts
     Dosage: FOR 7 DAYS EVERY 28 DAYS
     Route: 048
  2. VFEND [Suspect]
     Active Substance: VORICONAZOLE
     Indication: Product used for unknown indication
     Route: 065

REACTIONS (2)
  - Potentiating drug interaction [Unknown]
  - Incorrect dose administered [Unknown]
